FAERS Safety Report 4609500-2 (Version None)
Quarter: 2005Q1

REPORT INFORMATION
  Report Type: 
  Country: None (occurrence: None)
  Receive Date: 20050314
  Receipt Date: 20050314
  Transmission Date: 20050727
  Serious: Yes (Hospitalization)
  Sender: FDA-Public Use
  Company Number: None

PATIENT
  Age: 65 Year
  Sex: Male

DRUGS (16)
  1. FUROSEMIDE [Suspect]
     Indication: HYPERTENSION
     Dosage: 80 MG BID
     Dates: start: 20000801
  2. LISINOPRIL [Suspect]
     Indication: HYPERTENSION
     Dosage: 40 MG QD
     Dates: start: 20000801
  3. ARAVA [Concomitant]
  4. FOSAMAX [Concomitant]
  5. CELEBREX [Concomitant]
  6. FOLIC ACID [Concomitant]
  7. PREDNISONE [Concomitant]
  8. ALPROSTADIL [Concomitant]
  9. EFFEXOR [Concomitant]
  10. NPH INSULIN [Concomitant]
  11. SULFASALAZINE [Concomitant]
  12. ASPIRIN [Concomitant]
  13. LORATADINE [Concomitant]
  14. ZOCOR [Concomitant]
  15. MULTI-VITAMIN [Concomitant]
  16. SEROQUEL [Concomitant]

REACTIONS (1)
  - DIZZINESS [None]
